FAERS Safety Report 20777144 (Version 1)
Quarter: 2022Q2

REPORT INFORMATION
  Report Type: Spontaneous
  Country: GB (occurrence: GB)
  Receive Date: 20220503
  Receipt Date: 20220503
  Transmission Date: 20220721
  Serious: Yes (Hospitalization)
  Sender: FDA-Public Use
  Company Number: None

PATIENT
  Age: 70 Year
  Sex: Female

DRUGS (11)
  1. OMEPRAZOLE [Suspect]
     Active Substance: OMEPRAZOLE
     Dates: end: 20220214
  2. BETAMETHASONE [Concomitant]
     Active Substance: BETAMETHASONE
     Dosage: 0.1% SCALP APPLICATION
     Dates: end: 20220411
  3. BETAMETHASONE\FUSIDIC ACID [Concomitant]
     Active Substance: BETAMETHASONE\FUSIDIC ACID
     Dosage: 0.05% OINTMENT
     Dates: start: 20220411, end: 20220411
  4. CLOBETASOL [Concomitant]
     Active Substance: CLOBETASOL
     Dates: end: 20220411
  5. CAPASAL [Concomitant]
  6. DERMOL [Concomitant]
     Active Substance: BENZALKONIUM CHLORIDE\CHLORHEXIDINE HYDROCHLORIDE\ISOPROPYL MYRISTATE\PARAFFIN
  7. FEXOFENADINE [Concomitant]
     Active Substance: FEXOFENADINE HYDROCHLORIDE
  8. PREGABALIN [Concomitant]
     Active Substance: PREGABALIN
     Dates: end: 20220411
  9. ACETAMINOPHEN\TRAMADOL [Concomitant]
     Active Substance: ACETAMINOPHEN\TRAMADOL
     Dosage: 37.5MG/325MG TABLETS (GRUNENTHAL LTD)
  10. ZOLPIDEM [Concomitant]
     Active Substance: ZOLPIDEM TARTRATE
  11. PREGABALIN [Concomitant]
     Active Substance: PREGABALIN

REACTIONS (1)
  - Hyponatraemia [Recovered/Resolved]

NARRATIVE: CASE EVENT DATE: 20220214
